FAERS Safety Report 4835478-2 (Version None)
Quarter: 2005Q4

REPORT INFORMATION
  Report Type: 
  Country: None (occurrence: None)
  Receive Date: 20051121
  Receipt Date: 20051108
  Transmission Date: 20060501
  Serious: Yes (Other)
  Sender: FDA-Public Use
  Company Number: 2005138171

PATIENT
  Age: 81 Year
  Sex: Female
  Weight: 77.1115 kg

DRUGS (2)
  1. XALATAN [Suspect]
     Indication: GLAUCOMA
     Dosage: 1 DROP (1 DROP, QD), OPHTHALMIC
     Route: 047
  2. PREDNISONE [Suspect]
     Indication: TEMPORAL ARTERITIS
     Dosage: 3 MG (1 MG, DAILY)

REACTIONS (7)
  - BODY HEIGHT DECREASED [None]
  - DEPRESSION [None]
  - DIZZINESS [None]
  - DRUG DOSE OMISSION [None]
  - HYPOTENSION [None]
  - PHARMACEUTICAL PRODUCT COMPLAINT [None]
  - TEMPORAL ARTERITIS [None]
